FAERS Safety Report 6400023-7 (Version None)
Quarter: 2009Q4

REPORT INFORMATION
  Report Type: 
  Country: None (occurrence: None)
  Receive Date: 20091014
  Receipt Date: 20091006
  Transmission Date: 20100525
  Serious: Yes (Hospitalization)
  Sender: FDA-Public Use
  Company Number: A0731266A

PATIENT
  Age: 52 Year
  Sex: Female
  Weight: 100 kg

DRUGS (8)
  1. AVANDIA [Suspect]
     Dosage: 4MG TWICE PER DAY
     Route: 048
     Dates: start: 20010101
  2. AVANDAMET [Suspect]
     Route: 048
     Dates: start: 20051101
  3. INSULIN [Concomitant]
     Dates: start: 20061029, end: 20061105
  4. GLUCOTROL [Concomitant]
     Dates: start: 20080101
  5. ZOCOR [Concomitant]
  6. METOPROLOL [Concomitant]
  7. NEXIUM [Concomitant]
  8. GLIPIZIDE [Concomitant]

REACTIONS (4)
  - ACUTE CORONARY SYNDROME [None]
  - ANGINA UNSTABLE [None]
  - CORONARY ARTERY DISEASE [None]
  - MYOCARDIAL INFARCTION [None]
